FAERS Safety Report 19064586 (Version 8)
Quarter: 2021Q3

REPORT INFORMATION
  Report Type: Report from Study
  Country: None (occurrence: CO)
  Receive Date: 20210327
  Receipt Date: 20210827
  Transmission Date: 20211014
  Serious: Yes (Hospitalization, Other)
  Sender: FDA-Public Use
  Company Number: CO-ABBVIE-21K-036-3827163-00

PATIENT
  Age: 73 Year
  Sex: Male
  Weight: 70 kg

DRUGS (4)
  1. IMBRUVICA [Suspect]
     Active Substance: IBRUTINIB
     Indication: CHRONIC LYMPHOCYTIC LEUKAEMIA
     Route: 048
     Dates: start: 20170131
  2. IMBRUVICA [Suspect]
     Active Substance: IBRUTINIB
     Route: 048
     Dates: start: 20170208, end: 20210302
  3. METOPROLOL. [Concomitant]
     Active Substance: METOPROLOL
     Indication: PRODUCT USED FOR UNKNOWN INDICATION
  4. AMLODIPINE [Concomitant]
     Active Substance: AMLODIPINE BESYLATE
     Indication: PRODUCT USED FOR UNKNOWN INDICATION

REACTIONS (12)
  - Dyspnoea [Recovering/Resolving]
  - Gait disturbance [Recovered/Resolved]
  - Decreased appetite [Recovering/Resolving]
  - Lumbar puncture [Recovering/Resolving]
  - Pollakiuria [Recovering/Resolving]
  - Back pain [Recovering/Resolving]
  - Bacterial infection [Recovering/Resolving]
  - Renal disorder [Recovering/Resolving]
  - Malaise [Recovering/Resolving]
  - Urinary tract infection [Recovering/Resolving]
  - Aggression [Recovering/Resolving]
  - Localised infection [Recovering/Resolving]

NARRATIVE: CASE EVENT DATE: 20210308
